FAERS Safety Report 20751359 (Version 3)
Quarter: 2022Q3

REPORT INFORMATION
  Report Type: Spontaneous
  Country: IT (occurrence: IT)
  Receive Date: 20220426
  Receipt Date: 20220829
  Transmission Date: 20221026
  Serious: Yes (Disabling, Other)
  Sender: FDA-Public Use
  Company Number: IT-MLMSERVICE-20220407-3490252-1

PATIENT
  Age: 65 Year
  Sex: Male

DRUGS (4)
  1. CARBOPLATIN [Suspect]
     Active Substance: CARBOPLATIN
     Indication: Oropharyngeal squamous cell carcinoma
     Dosage: UNK, CYCLIC (AREA UNDER THE CURVE 4 FOR TWO CYCLES)
     Dates: start: 201808, end: 2018
  2. CETUXIMAB [Suspect]
     Active Substance: CETUXIMAB
     Indication: Oropharyngeal squamous cell carcinoma
     Dosage: 400 MG/M2 (LOADING DOSE)
     Dates: start: 201808
  3. CETUXIMAB [Suspect]
     Active Substance: CETUXIMAB
     Dosage: 1750 MG/M2, CYCLIC (WEEKLY 250 MG/MQ, AFTER A LOADING DOSE OF 400 MG/MQ, FOR SEVEN CYCLES)
     Dates: start: 201808, end: 2018
  4. FLUOROURACIL [Suspect]
     Active Substance: FLUOROURACIL
     Indication: Oropharyngeal squamous cell carcinoma
     Dosage: 8000 MG/M2, CYCLIC (4000 MG/MQ IN 120 H EVERY 3 WEEKS FOR TWO CYCLES)
     Dates: start: 201808, end: 2018

REACTIONS (3)
  - Neutropenia [Unknown]
  - Skin toxicity [Unknown]
  - Major depression [Unknown]

NARRATIVE: CASE EVENT DATE: 20180101
